FAERS Safety Report 24778351 (Version 3)
Quarter: 2025Q1

REPORT INFORMATION
  Report Type: Report from Study
  Country: CA (occurrence: CA)
  Receive Date: 20241226
  Receipt Date: 20250207
  Transmission Date: 20250409
  Serious: Yes (Other)
  Sender: BIOCON
  Company Number: CA-BIOCON BIOLOGICS LIMITED-BBL2024001087

PATIENT

DRUGS (7)
  1. HULIO [Suspect]
     Active Substance: ADALIMUMAB-FKJP
     Indication: Ankylosing spondylitis
     Route: 058
     Dates: start: 20210722
  2. HULIO [Suspect]
     Active Substance: ADALIMUMAB-FKJP
     Indication: Colitis ulcerative
     Dosage: 40 MILLIGRAM, Q2W
     Route: 058
     Dates: start: 201811, end: 202411
  3. ASACOL [Suspect]
     Active Substance: MESALAMINE
     Indication: Colitis ulcerative
     Dosage: 400 MILLIGRAM, TID
     Route: 065
  4. MESALAMINE [Suspect]
     Active Substance: MESALAMINE
     Indication: Colitis ulcerative
     Route: 065
  5. PENTASA [Suspect]
     Active Substance: MESALAMINE
     Indication: Colitis ulcerative
     Route: 065
  6. VITAMIN D NOS [Concomitant]
     Active Substance: CHOLECALCIFEROL\ERGOCALCIFEROL
     Indication: Product used for unknown indication
     Route: 065
  7. CALCIUM [Concomitant]
     Active Substance: CALCIUM
     Indication: Product used for unknown indication
     Route: 065

REACTIONS (9)
  - Colitis ulcerative [Unknown]
  - Haematochezia [Unknown]
  - Dry eye [Unknown]
  - Vision blurred [Unknown]
  - Injury [Unknown]
  - Product distribution issue [Unknown]
  - Product dose omission issue [Unknown]
  - Product prescribing issue [Unknown]
  - Circumstance or information capable of leading to medication error [Unknown]
